FAERS Safety Report 7342989-7 (Version None)
Quarter: 2011Q1

REPORT INFORMATION
  Report Type: 
  Country: None (occurrence: None)
  Receive Date: 20110310
  Receipt Date: 20110302
  Transmission Date: 20110831
  Serious: Yes (Other)
  Sender: FDA-Public Use
  Company Number: PHHY2010BR63801

PATIENT
  Sex: Male

DRUGS (7)
  1. TEGRETOL [Suspect]
     Indication: EPILEPSY
     Dosage: 100 ML, UNK
     Route: 048
  2. TEGRETOL-XR [Suspect]
     Indication: EPILEPSY
     Dosage: 400 MG, UNK
     Route: 048
  3. TEGRETOL-XR [Suspect]
     Dosage: 1200 MG, UNK
  4. PHENOBARBITAL [Concomitant]
  5. CLOBAZAM [Concomitant]
  6. TOPIRAMATE [Concomitant]
     Dosage: UNK
  7. CARBAMAZEPINE [Suspect]
     Indication: EPILEPSY

REACTIONS (5)
  - PARTIAL SEIZURES [None]
  - EPILEPSY [None]
  - CENTRAL NERVOUS SYSTEM LESION [None]
  - DIZZINESS [None]
  - ARACHNOID CYST [None]
